FAERS Safety Report 22917599 (Version 7)
Quarter: 2023Q4

REPORT INFORMATION
  Report Type: Spontaneous
  Country: GB (occurrence: GB)
  Receive Date: 20230907
  Receipt Date: 20231206
  Transmission Date: 20240109
  Serious: Yes (Hospitalization, Disabling, Other)
  Sender: FDA-Public Use
  Company Number: GB-SANDOZ-SDZ2023GB003000

PATIENT
  Age: 37 Year
  Sex: Male

DRUGS (7)
  1. OLANZAPINE [Suspect]
     Active Substance: OLANZAPINE
     Indication: Product used for unknown indication
     Dosage: OCCLUSIVE DRESSING TECHNIQUE
     Route: 065
  2. OLANZAPINE [Suspect]
     Active Substance: OLANZAPINE
     Dosage: OCCLUSIVE DRESSING TECHNIQUE, DOSE INCREASED
     Route: 065
  3. ABILIFY MAINTENA [Suspect]
     Active Substance: ARIPIPRAZOLE
     Indication: Product used for unknown indication
     Dosage: SUSPENSION FOR INJECTION (OCCLUSIVE DRESSING TECH)
     Route: 065
  4. ABILIFY MAINTENA [Suspect]
     Active Substance: ARIPIPRAZOLE
     Dosage: VERY VERY HIGH- AT LEAST 400 MG, FOR YEARS
     Dates: start: 20090101
  5. ABILIFY MAINTENA [Suspect]
     Active Substance: ARIPIPRAZOLE
     Dosage: 400 MILLIGRAM (AT LEAST 400 MG)
  6. CLOZAPINE [Suspect]
     Active Substance: CLOZAPINE
     Indication: Product used for unknown indication
     Dosage: OCCLUSIVE DRESSING TECHNIQUE
     Route: 065
  7. CLOZAPINE [Suspect]
     Active Substance: CLOZAPINE
     Dosage: OCCLUSIVE DRESSING TECHNIQUE, DOSE INCREASED
     Route: 065

REACTIONS (27)
  - Diarrhoea [Not Recovered/Not Resolved]
  - Diarrhoea [Not Recovered/Not Resolved]
  - Diarrhoea [Not Recovered/Not Resolved]
  - Discomfort [Unknown]
  - Skin irritation [Unknown]
  - Pain [Unknown]
  - Irritability [Unknown]
  - Pruritus [Unknown]
  - Musculoskeletal stiffness [Unknown]
  - Visual impairment [Unknown]
  - Personality change [Unknown]
  - Injection site pain [Unknown]
  - Scratch [Unknown]
  - Anxiety [Unknown]
  - Somnolence [Unknown]
  - Akathisia [Unknown]
  - Lethargy [Unknown]
  - Somnolence [Unknown]
  - Weight increased [Unknown]
  - Diabetes mellitus [Unknown]
  - Irritable bowel syndrome [Unknown]
  - Visual impairment [Unknown]
  - Tension [Unknown]
  - Pollakiuria [Unknown]
  - Loss of personal independence in daily activities [Unknown]
  - Product use in unapproved indication [Unknown]
  - Product prescribing error [Unknown]

NARRATIVE: CASE EVENT DATE: 20090101
